FAERS Safety Report 25037849 (Version 2)
Quarter: 2025Q1

REPORT INFORMATION
  Report Type: Report from Study
  Country: US (occurrence: US)
  Receive Date: 20250304
  Receipt Date: 20250306
  Transmission Date: 20250408
  Serious: No
  Sender: SANDOZ
  Company Number: US-SANDOZ-SDZ2023US077352

PATIENT
  Age: 10 Year
  Sex: Female
  Weight: 21.77 kg

DRUGS (2)
  1. OMNITROPE [Suspect]
     Active Substance: SOMATROPIN
     Indication: Hypopituitarism
     Dosage: 1.2 MG DAILY FOR 6 DAYS AT BEDTIME
     Route: 058
     Dates: start: 20230214
  2. OMNITROPE [Suspect]
     Active Substance: SOMATROPIN
     Indication: Hypopituitarism
     Dosage: 1.2 MG DAILY FOR 6 DAYS AT BEDTIME
     Route: 058
     Dates: start: 20230214

REACTIONS (4)
  - Injection site pain [Unknown]
  - Product dose omission in error [Unknown]
  - Device delivery system issue [Unknown]
  - Device malfunction [Unknown]

NARRATIVE: CASE EVENT DATE: 20230804
